FAERS Safety Report 8226975-0 (Version None)
Quarter: 2012Q1

REPORT INFORMATION
  Report Type: 
  Country: None (occurrence: None)
  Receive Date: 20120322
  Receipt Date: 20120312
  Transmission Date: 20120608
  Serious: Yes (Other)
  Sender: FDA-Public Use
  Company Number: US-JNJFOC-20120306543

PATIENT
  Sex: Female
  Weight: 41.28 kg

DRUGS (16)
  1. CYMBALTA [Concomitant]
     Indication: DEPRESSION
     Route: 048
  2. PREMARIN [Concomitant]
     Indication: OESTROGEN REPLACEMENT THERAPY
     Route: 048
  3. FLEXERIL [Concomitant]
     Indication: MUSCLE SPASMS
     Route: 048
     Dates: end: 20110101
  4. SPIRIVA [Concomitant]
     Indication: ASTHMA
     Route: 055
  5. PROAIR HFA [Concomitant]
     Indication: CHRONIC OBSTRUCTIVE PULMONARY DISEASE
     Route: 055
  6. SPIRIVA [Concomitant]
     Indication: CHRONIC OBSTRUCTIVE PULMONARY DISEASE
     Route: 055
  7. DURAGESIC-100 [Suspect]
     Indication: SPINAL FUSION SURGERY
     Route: 062
     Dates: start: 20100101
  8. DURAGESIC-100 [Suspect]
     Indication: INTERVERTEBRAL DISC DEGENERATION
     Route: 062
     Dates: start: 20100101
  9. CRESTOR [Concomitant]
     Indication: BLOOD CHOLESTEROL INCREASED
     Route: 048
  10. OMEPRAZOLE [Concomitant]
     Indication: GASTROOESOPHAGEAL REFLUX DISEASE
     Route: 048
  11. ALBUTEROL [Concomitant]
     Indication: ASTHMA
     Route: 055
  12. DURAGESIC-100 [Suspect]
     Indication: ARTHRITIS
     Route: 062
     Dates: start: 20100101
  13. PROAIR HFA [Concomitant]
     Indication: ASTHMA
     Route: 055
  14. LORTAB [Concomitant]
     Indication: PAIN
     Dosage: 10-325 MG 1-2 TIMES EVERY 4-6 HOURS
     Route: 048
  15. ALBUTEROL [Concomitant]
     Indication: CHRONIC OBSTRUCTIVE PULMONARY DISEASE
     Route: 055
  16. PROMETHAZINE [Concomitant]
     Indication: NAUSEA
     Route: 048

REACTIONS (9)
  - PAIN [None]
  - INAPPROPRIATE SCHEDULE OF DRUG ADMINISTRATION [None]
  - CATARACT [None]
  - WRONG TECHNIQUE IN DRUG USAGE PROCESS [None]
  - HEADACHE [None]
  - VISUAL IMPAIRMENT [None]
  - PRODUCT QUALITY ISSUE [None]
  - FEELING ABNORMAL [None]
  - POOR QUALITY DRUG ADMINISTERED [None]
